FAERS Safety Report 16470720 (Version 4)
Quarter: 2019Q4

REPORT INFORMATION
  Report Type: Spontaneous
  Country: US (occurrence: US)
  Receive Date: 20190624
  Receipt Date: 20191226
  Transmission Date: 20200122
  Serious: Yes (Hospitalization, Other)
  Sender: FDA-Public Use
  Company Number: US-CATALYST PHARMACEUTICALS, INC-2019CAT00171

PATIENT
  Age: 51 Year
  Sex: Female

DRUGS (3)
  1. FIRDAPSE [Suspect]
     Active Substance: AMIFAMPRIDINE
     Indication: MYASTHENIC SYNDROME
     Dosage: 80 MG, 1X/DAY
     Route: 048
     Dates: end: 2019
  2. FIRDAPSE [Suspect]
     Active Substance: AMIFAMPRIDINE
     Dosage: 100 MG, 1X/DAY
     Route: 048
     Dates: start: 2019, end: 2019
  3. FIRDAPSE [Suspect]
     Active Substance: AMIFAMPRIDINE
     Dosage: 20 MG, 6X/DAY
     Route: 048
     Dates: start: 2019

REACTIONS (8)
  - Drug ineffective [Recovered/Resolved]
  - Vomiting [Unknown]
  - Gait disturbance [Not Recovered/Not Resolved]
  - Asthenia [Unknown]
  - Prescribed overdose [Not Recovered/Not Resolved]
  - Dizziness [Unknown]
  - Dyspnoea [Unknown]
  - Muscular weakness [Unknown]

NARRATIVE: CASE EVENT DATE: 2019
